FAERS Safety Report 7733840-1 (Version None)
Quarter: 2011Q3

REPORT INFORMATION
  Report Type: 
  Country: None (occurrence: None)
  Receive Date: 20110901
  Receipt Date: 20110818
  Transmission Date: 20111222
  Serious: Yes (Other)
  Sender: FDA-Public Use
  Company Number: COL_09659_2011

PATIENT
  Sex: Female
  Weight: 72 kg

DRUGS (2)
  1. CHLORHEXIDINE GLUCONATE [Suspect]
     Indication: GINGIVITIS
  2. CHLORHEXIDINE GLUCONATE [Suspect]
     Indication: PERIODONTAL DISEASE

REACTIONS (1)
  - PAROTITIS [None]
